FAERS Safety Report 5446563-9 (Version None)
Quarter: 2007Q3

REPORT INFORMATION
  Report Type: 
  Country: None (occurrence: None)
  Receive Date: 20070907
  Receipt Date: 20070829
  Transmission Date: 20080115
  Serious: Yes (Other)
  Sender: FDA-Public Use
  Company Number: US-PFIZER INC-2004040259

PATIENT
  Sex: Female
  Weight: 51.3 kg

DRUGS (3)
  1. LIPITOR [Suspect]
     Indication: BLOOD CHOLESTEROL INCREASED
     Route: 048
  2. ZETIA [Suspect]
  3. PROPRANOLOL HYDROCHLORIDE [Concomitant]
     Route: 065

REACTIONS (7)
  - ALOPECIA [None]
  - BLOOD PRESSURE INCREASED [None]
  - HEPATIC ENZYME INCREASED [None]
  - HYPERHIDROSIS [None]
  - PAIN [None]
  - POLLAKIURIA [None]
  - VEIN DISORDER [None]
